FAERS Safety Report 10645522 (Version 1)
Quarter: 2014Q4

REPORT INFORMATION
  Report Type: Spontaneous
  Country: US (occurrence: US)
  Receive Date: 20141211
  Receipt Date: 20141211
  Transmission Date: 20150529
  Serious: No
  Sender: FDA-Public Use
  Company Number: US-TEVA-528201USA

PATIENT
  Age: 16 Year
  Sex: Female
  Weight: 66.28 kg

DRUGS (1)
  1. PLAN B ONE-STEP [Suspect]
     Active Substance: LEVONORGESTREL
     Indication: POST COITAL CONTRACEPTION
     Dosage: 1.5 MILLIGRAM DAILY;
     Route: 048
     Dates: start: 201411, end: 201411

REACTIONS (5)
  - Abdominal pain upper [Unknown]
  - Menstruation irregular [Recovered/Resolved]
  - Dizziness [Not Recovered/Not Resolved]
  - Abdominal distension [Unknown]
  - Somnolence [Recovered/Resolved]

NARRATIVE: CASE EVENT DATE: 20141204
